FAERS Safety Report 5264899-1 (Version None)
Quarter: 2007Q1

REPORT INFORMATION
  Report Type: 
  Country: None (occurrence: None)
  Receive Date: 20070314
  Receipt Date: 20070309
  Transmission Date: 20070707
  Serious: Yes (Death)
  Sender: FDA-Public Use
  Company Number: 2007SE01377

PATIENT
  Sex: Male

DRUGS (3)
  1. SEROQUEL [Suspect]
  2. LIPITOR [Concomitant]
  3. CIPRALEX [Concomitant]

REACTIONS (1)
  - DEATH [None]
